FAERS Safety Report 24766008 (Version 1)
Quarter: 2024Q4

REPORT INFORMATION
  Report Type: Spontaneous
  Country: US (occurrence: US)
  Receive Date: 20241223
  Receipt Date: 20241223
  Transmission Date: 20250114
  Serious: Yes (Other)
  Sender: COOPERSURGICAL
  Company Number: US-COOPERSURGICAL, INC.-2024CPS004098

PATIENT
  Age: 29 Year
  Sex: Female
  Weight: 65.76 kg

DRUGS (1)
  1. PARAGARD T 380A [Suspect]
     Active Substance: COPPER
     Indication: Contraception
     Dosage: UNK
     Route: 015
     Dates: start: 20130228

REACTIONS (30)
  - Uterine leiomyoma [Unknown]
  - Reproductive complication associated with device [Not Recovered/Not Resolved]
  - Arnold-Chiari malformation [Unknown]
  - Vagus nerve disorder [Recovered/Resolved]
  - Injury [Unknown]
  - Device breakage [Not Recovered/Not Resolved]
  - Foreign body in reproductive tract [Not Recovered/Not Resolved]
  - Complication of device removal [Not Recovered/Not Resolved]
  - Embedded device [Not Recovered/Not Resolved]
  - Abortion spontaneous [Unknown]
  - Uterine scar [Not Recovered/Not Resolved]
  - Uterine adhesions [Unknown]
  - Depression [Unknown]
  - Anxiety [Unknown]
  - Cough [Unknown]
  - Chest discomfort [Unknown]
  - Supraventricular extrasystoles [Recovered/Resolved]
  - Palpitations [Recovered/Resolved]
  - Chest pain [Unknown]
  - Dysphagia [Unknown]
  - Asthma [Unknown]
  - Constipation [Unknown]
  - Change of bowel habit [Unknown]
  - COVID-19 [Unknown]
  - Dehydration [Unknown]
  - Eustachian tube dysfunction [Unknown]
  - Vocal cord paralysis [Unknown]
  - Mole excision [Recovered/Resolved]
  - Joint injury [Recovered/Resolved]
  - Arthralgia [Recovered/Resolved]

NARRATIVE: CASE EVENT DATE: 20130228
